FAERS Safety Report 11398112 (Version 1)
Quarter: 2015Q3

REPORT INFORMATION
  Report Type: Spontaneous
  Country: BR (occurrence: BR)
  Receive Date: 20150820
  Receipt Date: 20150820
  Transmission Date: 20151125
  Serious: Yes (Other)
  Sender: FDA-Public Use
  Company Number: BR-ROCHE-1621997

PATIENT
  Sex: Female
  Weight: 68 kg

DRUGS (10)
  1. METHANEARSONIC ACID DISODIUM [Concomitant]
  2. PARACETAMOL [Concomitant]
     Active Substance: ACETAMINOPHEN
     Route: 048
  3. BENADRYL (BRAZIL) [Concomitant]
     Active Substance: DIPHENHYDRAMINE HYDROCHLORIDE
     Route: 042
  4. SERTRALINE [Concomitant]
     Active Substance: SERTRALINE HYDROCHLORIDE
  5. CLONAZEPAM. [Concomitant]
     Active Substance: CLONAZEPAM
     Route: 065
  6. CARBAMAZEPINE. [Concomitant]
     Active Substance: CARBAMAZEPINE
  7. MABTHERA [Suspect]
     Active Substance: RITUXIMAB
     Indication: CHRONIC LYMPHOCYTIC LEUKAEMIA
     Dosage: (DILUTED IN 500 ML OF SALINE SOLUTION 0.9% (HALEXISTAR) - LOT NUMBER: 92622, EXPIRY DATE: /JUL/2017)
     Route: 042
     Dates: start: 20150804, end: 20150804
  8. CYCLOPHOSPHAMIDE. [Concomitant]
     Active Substance: CYCLOPHOSPHAMIDE
     Dosage: (DILUTED IN 100 ML OF SALINE SOLUTION 0.9% (BAXTER), LOT NUMBER: PR198H3 AND EXPIRY DATE: /MAY/2016)
     Route: 065
  9. ZOFRAN [Concomitant]
     Active Substance: ONDANSETRON HYDROCHLORIDE
     Dosage: 1 AMPULE
     Route: 042
  10. FLUDARABINE [Concomitant]
     Active Substance: FLUDARABINE PHOSPHATE
     Dosage: (DILUTED IN 100 ML OF SALINE SOLUTION 0.9% (BAXTER), LOT NUMBER: PR198H3 AND EXPIRY DATE: /MAY/2016)
     Route: 065

REACTIONS (9)
  - Vomiting [Recovered/Resolved]
  - Arrhythmia [Recovered/Resolved]
  - Hyperhidrosis [Recovered/Resolved]
  - Malaise [Recovered/Resolved]
  - Nausea [Recovered/Resolved]
  - Hypotension [Recovered/Resolved]
  - Cyanosis [Recovered/Resolved]
  - Abdominal pain [Recovered/Resolved]
  - Dyspnoea [Recovered/Resolved]

NARRATIVE: CASE EVENT DATE: 20150804
